FAERS Safety Report 5621476-8 (Version None)
Quarter: 2008Q1

REPORT INFORMATION
  Report Type: 
  Country: None (occurrence: None)
  Receive Date: 20080129
  Receipt Date: 20080114
  Transmission Date: 20080703
  Serious: Yes (Death, Life-Threatening, Hospitalization)
  Sender: FDA-Public Use
  Company Number: CHNY2008DE00568

PATIENT
  Age: 77 Year
  Sex: Female

DRUGS (24)
  1. TAVEGIL (CLEMASTINE HYDROGEN FUMARATE) [Suspect]
     Indication: DRUG ERUPTION
     Dosage: ORAL
     Route: 048
     Dates: start: 20030403, end: 20030409
  2. METOCLOPRAMIDE [Suspect]
     Indication: NAUSEA
     Dates: start: 20030409
  3. DIAZEPAM [Suspect]
     Indication: GRAND MAL CONVULSION
     Dates: start: 20030331, end: 20030409
  4. PANTOPRAZOLE SODIUM [Suspect]
     Dosage: 20 MG, QD,
     Dates: start: 20030314, end: 20030101
  5. TIMONIL(CARBAMAZEPINE) UNKNOWN [Suspect]
     Indication: GRAND MAL CONVULSION
     Dosage: 1 DF, BID,
     Dates: start: 20030201, end: 20030416
  6. DIGITOXIN TAB [Suspect]
     Indication: SUPRAVENTRICULAR TACHYCARDIA
     Dates: start: 20030304, end: 20030101
  7. CLONAZEPAM [Suspect]
     Indication: GRAND MAL CONVULSION
     Dates: start: 20030331, end: 20030409
  8. THEOPHYLLINE [Suspect]
     Indication: ASTHMA
     Dosage: 1 DF, BID,
     Dates: start: 20030314, end: 20030101
  9. ISOPTIN [Suspect]
     Indication: SUPRAVENTRICULAR TACHYCARDIA
     Dosage: 1-0 , 1-0 /2,
     Dates: start: 20030314, end: 20030331
  10. PULMICORT [Suspect]
     Indication: CHRONIC OBSTRUCTIVE PULMONARY DISEASE
     Dosage: 2-0-2, 2-0-0, INHALATION
     Route: 055
     Dates: start: 20030327, end: 20030329
  11. SEREVENT [Suspect]
     Indication: CHRONIC OBSTRUCTIVE PULMONARY DISEASE
     Dosage: 2 DF, QD, INHALATION
     Route: 055
     Dates: start: 20030327, end: 20030329
  12. EUNERPAN(MELPERONE HYDROCHLORIDE) [Suspect]
     Indication: SLEEP DISORDER
     Dates: start: 20030327, end: 20030330
  13. MARCUMAR [Suspect]
     Indication: THROMBOSIS PROPHYLAXIS
     Dates: start: 20030314, end: 20030406
  14. PREDNISOLONE [Suspect]
     Indication: DRUG ERUPTION
     Dates: start: 20030320, end: 20030411
  15. DIGOXIN [Suspect]
     Indication: SUPRAVENTRICULAR TACHYCARDIA
     Dosage: 1 DF, QD,
     Dates: start: 20030314, end: 20030416
  16. PLAVIX [Suspect]
     Indication: THROMBOSIS PROPHYLAXIS
     Dates: start: 20030228, end: 20030101
  17. DYTIDE(BENZTHIAZIDE, TRIAMTERENE) [Suspect]
     Indication: HYPERTENSION
     Dosage: 1 DF, BID,
     Dates: start: 20030314, end: 20030101
  18. TELFAST/SCH/(FEXOFENADINE HYDROCHLORIDE) [Suspect]
     Indication: DRUG ERUPTION
     Dosage: 1 DF, QD,
     Dates: start: 20030409, end: 20030410
  19. INNOHEP [Suspect]
     Indication: THROMBOSIS PROPHYLAXIS
     Dosage: 0.4 ML, SUBCUTANEOUS
     Route: 058
     Dates: start: 20030409, end: 20030416
  20. REPETIN() [Suspect]
     Indication: PRURITUS
     Dosage: 1 DF, QD,
     Dates: start: 20030410, end: 20030416
  21. CORNEREGEL(DEXPANTHENOL) [Suspect]
     Indication: CONJUNCTIVITIS
     Dosage: TID,
     Dates: start: 20030412, end: 20030416
  22. BERODUAL(FENOTEROL HYDROBROMIDE, IPRATROPIUM BROMIDE) [Suspect]
     Indication: CHRONIC OBSTRUCTIVE PULMONARY DISEASE
     Dosage: 2X2,
     Dates: start: 20030412, end: 20060416
  23. VALPROATE SODIUM [Suspect]
     Indication: EPILEPSY
     Dosage: 1 DF, BID,
  24. FRISIUM(CLOBAZAM) [Suspect]
     Indication: EPILEPSY
     Dates: start: 20030416, end: 20030101

REACTIONS (2)
  - STEVENS-JOHNSON SYNDROME [None]
  - TOXIC EPIDERMAL NECROLYSIS [None]
